FAERS Safety Report 6667505-4 (Version None)
Quarter: 2010Q2

REPORT INFORMATION
  Report Type: 
  Country: None (occurrence: None)
  Receive Date: 20100405
  Receipt Date: 20100322
  Transmission Date: 20101027
  Serious: Yes (Death, Life-Threatening, Hospitalization, Disabling, Other)
  Sender: FDA-Public Use
  Company Number: GB-GENENTECH-259592

PATIENT
  Sex: Female
  Weight: 54 kg

DRUGS (6)
  1. LUCENTIS [Suspect]
     Indication: MACULAR DEGENERATION
     Dosage: 0.3 MG, UNKNOWN
     Route: 031
     Dates: start: 20070910, end: 20071101
  2. VISUDYNE [Suspect]
     Indication: MACULAR DEGENERATION
     Dosage: UNK
     Route: 042
     Dates: start: 20070910
  3. MINOCYCLINE HCL [Suspect]
     Indication: MACULAR DEGENERATION
     Dosage: UNK
     Route: 048
     Dates: start: 20070910
  4. DEXAMETHASONE [Suspect]
     Indication: MACULAR DEGENERATION
     Dosage: UNK
     Route: 031
     Dates: start: 20070910
  5. WARFARIN SODIUM [Concomitant]
     Indication: HYPERTENSION
  6. WARFARIN SODIUM [Concomitant]
     Indication: TRANSIENT ISCHAEMIC ATTACK

REACTIONS (3)
  - EXTRADURAL HAEMATOMA [None]
  - SPINAL CORD COMPRESSION [None]
  - SYNCOPE [None]
